FAERS Safety Report 5153480-0 (Version None)
Quarter: 2006Q4

REPORT INFORMATION
  Report Type: 
  Country: None (occurrence: None)
  Receive Date: 20061117
  Receipt Date: 20061107
  Transmission Date: 20070319
  Serious: Yes (Hospitalization, Other)
  Sender: FDA-Public Use
  Company Number: JP-ABBOTT-06P-087-0349483-00

PATIENT
  Age: 84 Year
  Sex: Female

DRUGS (8)
  1. SEVOFLURANE [Suspect]
     Indication: MAINTENANCE OF ANAESTHESIA
     Dosage: NOT REPORTED
  2. PROPOFOL [Suspect]
     Indication: INDUCTION OF ANAESTHESIA
     Dosage: NOT REPORTED
  3. VECURONIUM BROMIDE [Suspect]
     Indication: INDUCTION AND MAINTENANCE OF ANAESTHESIA
     Dosage: NOT REPORTED
  4. FENTANYL [Suspect]
     Indication: INDUCTION OF ANAESTHESIA
     Dosage: NOT REPORTED
  5. ROPIVACAINE [Suspect]
     Indication: DRUG USE FOR UNKNOWN INDICATION
     Route: 008
  6. MORPHINE SULFATE [Suspect]
     Indication: DRUG USE FOR UNKNOWN INDICATION
     Route: 008
  7. OXYGEN [Suspect]
     Indication: MAINTENANCE OF ANAESTHESIA
     Dosage: NOT REPORTED
  8. MUSCLE RELAXANTS [Concomitant]
     Indication: DRUG USE FOR UNKNOWN INDICATION
     Dosage: NOT REPORTED

REACTIONS (2)
  - ANEURYSM [None]
  - PULMONARY OEDEMA [None]
